FAERS Safety Report 9735602 (Version 1)
Quarter: 2013Q4

REPORT INFORMATION
  Report Type: Spontaneous
  Country: CA (occurrence: CA)
  Receive Date: 20131206
  Receipt Date: 20131206
  Transmission Date: 20140711
  Serious: Yes (Life-Threatening, Other)
  Sender: FDA-Public Use
  Company Number: CA-B.I. PHARMACEUTICALS,INC./RIDGEFIELD-2013-BI-40836CN

PATIENT
  Age: 90 Year
  Sex: Female
  Weight: 41 kg

DRUGS (2)
  1. PRADAX [Suspect]
     Dosage: 220 MG
     Route: 048
  2. PRADAX [Concomitant]

REACTIONS (8)
  - Abnormal faeces [Not Recovered/Not Resolved]
  - Diarrhoea [Not Recovered/Not Resolved]
  - Faeces pale [Not Recovered/Not Resolved]
  - Food interaction [Not Recovered/Not Resolved]
  - Haemorrhage [Not Recovered/Not Resolved]
  - Headache [Not Recovered/Not Resolved]
  - Presyncope [Not Recovered/Not Resolved]
  - Urine odour abnormal [Not Recovered/Not Resolved]
